FAERS Safety Report 9734437 (Version 2)
Quarter: 2013Q4

REPORT INFORMATION
  Report Type: Spontaneous
  Country: US (occurrence: US)
  Receive Date: 20131206
  Receipt Date: 20131206
  Transmission Date: 20140711
  Serious: Yes (Other)
  Sender: FDA-Public Use
  Company Number: US-BEH-2013038887

PATIENT
  Sex: Female

DRUGS (1)
  1. HIZENTRA [Suspect]

REACTIONS (7)
  - Cholecystectomy [Unknown]
  - Endovenous ablation [Unknown]
  - Urinary retention [Unknown]
  - Impaired gastric emptying [Unknown]
  - Infusion site urticaria [Recovered/Resolved]
  - Infusion site pruritus [Recovered/Resolved]
  - Oedema peripheral [Unknown]
